FAERS Safety Report 7810778-2 (Version None)
Quarter: 2011Q4

REPORT INFORMATION
  Report Type: 
  Country: None (occurrence: None)
  Receive Date: 20111011
  Receipt Date: 20110928
  Transmission Date: 20120403
  Serious: Yes (Other)
  Sender: FDA-Public Use
  Company Number: 1000024486

PATIENT
  Age: 32 Year
  Sex: Male

DRUGS (4)
  1. AMOXAPINE [Suspect]
  2. FLUNITRAZEPAM (FLUNITRAZEPAM) (FLUNITRAZEPAM) [Concomitant]
  3. LEXAPRO [Suspect]
     Indication: DEPRESSION
     Dosage: 10 MG (10 MG,1 IN 1 D)
     Dates: start: 20110824, end: 20110926
  4. LEXOTAN (BROMAZEPAM) (TABLETS) (BROMAZEPAM) [Concomitant]

REACTIONS (1)
  - CONVULSION [None]
